FAERS Safety Report 6309711-4 (Version None)
Quarter: 2009Q3

REPORT INFORMATION
  Report Type: 
  Country: None (occurrence: None)
  Receive Date: 20090814
  Receipt Date: 20090803
  Transmission Date: 20100115
  Serious: Yes (Hospitalization)
  Sender: FDA-Public Use
  Company Number: PHEH2009US08727

PATIENT
  Sex: Female

DRUGS (1)
  1. EXJADE [Suspect]
     Dosage: 1250 MG/DAY
     Route: 048
     Dates: start: 20090518

REACTIONS (6)
  - BLOOD DISORDER [None]
  - CHILLS [None]
  - CHROMATURIA [None]
  - COUGH [None]
  - DIARRHOEA [None]
  - PYREXIA [None]
